FAERS Safety Report 25563327 (Version 2)
Quarter: 2025Q4

REPORT INFORMATION
  Report Type: Report from Study
  Country: JP (occurrence: JP)
  Receive Date: 20250716
  Receipt Date: 20251124
  Transmission Date: 20260119
  Serious: Yes (Other)
  Sender: UCB
  Company Number: JP-UCBJ-CD202509318UCBPHAPROD

PATIENT
  Age: 9 Year

DRUGS (1)
  1. FENFLURAMINE HYDROCHLORIDE [Suspect]
     Active Substance: FENFLURAMINE HYDROCHLORIDE
     Indication: Lennox-Gastaut syndrome
     Dosage: UNK

REACTIONS (2)
  - Epilepsy [Not Recovered/Not Resolved]
  - Somnolence [Not Recovered/Not Resolved]
